FAERS Safety Report 4338414-0 (Version None)
Quarter: 2004Q1

REPORT INFORMATION
  Report Type: 
  Country: None (occurrence: None)
  Receive Date: 20040329
  Receipt Date: 20040217
  Transmission Date: 20041129
  Serious: No
  Sender: FDA-Public Use
  Company Number: USA040259751

PATIENT
  Sex: Male

DRUGS (4)
  1. STRATTERA [Suspect]
  2. ADDERALL 10 [Concomitant]
  3. LOTENSIN [Concomitant]
  4. HYDROCHLOROTHIAZIDE [Concomitant]

REACTIONS (2)
  - FLUSHING [None]
  - HYPERHIDROSIS [None]
